FAERS Safety Report 6794037-5 (Version None)
Quarter: 2010Q2

REPORT INFORMATION
  Report Type: 
  Country: None (occurrence: None)
  Receive Date: 20100624
  Receipt Date: 20090604
  Transmission Date: 20101027
  Serious: Yes (Hospitalization, Other)
  Sender: FDA-Public Use
  Company Number: JP-PFIZER INC-2009188948

PATIENT
  Sex: Female
  Weight: 50 kg

DRUGS (2)
  1. RELPAX [Suspect]
     Indication: HEADACHE
     Dosage: UNK
     Route: 048
     Dates: start: 20081031, end: 20081031
  2. PLETAL [Suspect]
     Dosage: UNK
     Dates: start: 20090116, end: 20090118

REACTIONS (2)
  - CEREBRAL INFARCTION [None]
  - HEADACHE [None]
